FAERS Safety Report 7320942-7 (Version None)
Quarter: 2011Q1

REPORT INFORMATION
  Report Type: 
  Country: None (occurrence: None)
  Receive Date: 20110223
  Receipt Date: 20110223
  Transmission Date: 20110831
  Serious: No
  Sender: FDA-Public Use
  Company Number: None

PATIENT
  Age: 39 Year
  Sex: Male
  Weight: 90.7194 kg

DRUGS (4)
  1. HYDROCODONE BITARTRATE [Concomitant]
  2. NASONEX [Suspect]
     Indication: MULTIPLE ALLERGIES
     Dosage: 2 SPRAYS PER NOSTRIL 1/DAY NASAL
     Route: 045
     Dates: start: 20050801, end: 20091101
  3. CHANTIX [Concomitant]
  4. NABUMETONE [Concomitant]

REACTIONS (1)
  - CATARACT [None]
